FAERS Safety Report 6731343-4 (Version None)
Quarter: 2010Q2

REPORT INFORMATION
  Report Type: 
  Country: None (occurrence: None)
  Receive Date: 20100517
  Receipt Date: 20100517
  Transmission Date: 20101027
  Serious: Yes (Hospitalization, Disabling)
  Sender: FDA-Public Use
  Company Number: None

PATIENT
  Age: 18 Year
  Sex: Female
  Weight: 56.6996 kg

DRUGS (1)
  1. NUVARING 0.12MG /03015 MG PER DAY ORGANON [Suspect]
     Indication: CONTRACEPTION
     Dosage: 1 RING PER MONTH VAG
     Route: 067
     Dates: start: 20090301, end: 20091001

REACTIONS (4)
  - BENIGN INTRACRANIAL HYPERTENSION [None]
  - DRUG INEFFECTIVE [None]
  - EYE DISORDER [None]
  - HEADACHE [None]
